FAERS Safety Report 6056280-2 (Version None)
Quarter: 2009Q1

REPORT INFORMATION
  Report Type: 
  Country: None (occurrence: None)
  Receive Date: 20090129
  Receipt Date: 20090129
  Transmission Date: 20090719
  Serious: Yes (Other)
  Sender: FDA-Public Use
  Company Number: None

PATIENT

DRUGS (2)
  1. RISPERDAL [Suspect]
     Indication: ASPERGER'S DISORDER
     Dosage: 3 MG 1 Q DAY PO
     Route: 048
  2. RISPERDAL [Suspect]
     Indication: MAJOR DEPRESSION
     Dosage: 3 MG 1 Q DAY PO
     Route: 048

REACTIONS (2)
  - DRUG INEFFECTIVE [None]
  - TIC [None]
